FAERS Safety Report 7418371-0 (Version None)
Quarter: 2011Q2

REPORT INFORMATION
  Report Type: 
  Country: None (occurrence: None)
  Receive Date: 20110415
  Receipt Date: 20110406
  Transmission Date: 20111010
  Serious: Yes (Hospitalization)
  Sender: FDA-Public Use
  Company Number: B0711014A

PATIENT
  Sex: Male

DRUGS (1)
  1. ARIXTRA [Suspect]
     Indication: THROMBOSIS PROPHYLAXIS
     Dosage: 2.5MG PER DAY
     Route: 058
     Dates: start: 20101230, end: 20110211

REACTIONS (4)
  - SKIN FRAGILITY [None]
  - INCORRECT DRUG ADMINISTRATION DURATION [None]
  - HAEMATOMA [None]
  - HEADACHE [None]
